FAERS Safety Report 7273231-3 (Version None)
Quarter: 2011Q1

REPORT INFORMATION
  Report Type: 
  Country: None (occurrence: None)
  Receive Date: 20110203
  Receipt Date: 20110121
  Transmission Date: 20110831
  Serious: Yes (Hospitalization)
  Sender: FDA-Public Use
  Company Number: DE-ELI_LILLY_AND_COMPANY-DE201101005277

PATIENT
  Sex: Male

DRUGS (2)
  1. ERGENYL [Concomitant]
     Dosage: UNK, UNKNOWN
     Route: 065
  2. ZYPADHERA [Suspect]
     Indication: SCHIZOPHRENIA
     Dosage: 300 MG, UNKNOWN
     Route: 030

REACTIONS (4)
  - SOMNOLENCE [None]
  - BLOOD PRESSURE DECREASED [None]
  - PALLOR [None]
  - DIZZINESS [None]
